FAERS Safety Report 6003452-9 (Version None)
Quarter: 2008Q4

REPORT INFORMATION
  Report Type: 
  Country: None (occurrence: None)
  Receive Date: 20081216
  Receipt Date: 20081212
  Transmission Date: 20090506
  Serious: Yes (Hospitalization)
  Sender: FDA-Public Use
  Company Number: FR-RB-007474-08

PATIENT
  Sex: Male
  Weight: 1.99 kg

DRUGS (1)
  1. SUBUTEX [Suspect]
     Indication: DRUG USE FOR UNKNOWN INDICATION
     Dosage: DOSING INFORMATION UNKNOWN
     Route: 064
     Dates: end: 20081112

REACTIONS (10)
  - BRADYCARDIA [None]
  - BRADYCARDIA NEONATAL [None]
  - CAESAREAN SECTION [None]
  - DRUG EXPOSURE DURING PREGNANCY [None]
  - DRUG EXPOSURE VIA BREAST MILK [None]
  - HYPERTONIA [None]
  - HYPERTONIA NEONATAL [None]
  - MATERNAL DRUGS AFFECTING FOETUS [None]
  - TREMOR [None]
  - TREMOR NEONATAL [None]
